APPROVED DRUG PRODUCT: DOXYCYCLINE
Active Ingredient: DOXYCYCLINE
Strength: EQ 75MG BASE
Dosage Form/Route: CAPSULE;ORAL
Application: A065055 | Product #004
Applicant: STRIDES PHARMA INTERNATIONAL AG
Approved: Apr 18, 2005 | RLD: No | RS: No | Type: DISCN